FAERS Safety Report 10253237 (Version 1)
Quarter: 2014Q2

REPORT INFORMATION
  Report Type: Spontaneous
  Country: US (occurrence: US)
  Receive Date: 20140623
  Receipt Date: 20140623
  Transmission Date: 20141212
  Serious: No
  Sender: FDA-Public Use
  Company Number: US-ZOGENIX, INC.-2011ZX000463

PATIENT
  Sex: Female
  Weight: 93.07 kg

DRUGS (5)
  1. SUMAVEL DOSEPRO [Suspect]
     Indication: MIGRAINE
  2. ESOMEPRAZOLE [Concomitant]
     Indication: PRODUCT USED FOR UNKNOWN INDICATION
  3. FLUOXETINE [Concomitant]
     Indication: DEPRESSION
  4. TOPIRAMATE [Concomitant]
     Indication: MIGRAINE
     Route: 048
  5. AMITRIPTYLINE [Concomitant]
     Indication: MIGRAINE

REACTIONS (3)
  - Injection site irritation [Not Recovered/Not Resolved]
  - Device malfunction [Recovered/Resolved]
  - Accidental exposure to product [Recovered/Resolved]
